FAERS Safety Report 18771868 (Version 1)
Quarter: 2021Q1

REPORT INFORMATION
  Report Type: Spontaneous
  Country: US (occurrence: US)
  Receive Date: 20210120
  Receipt Date: 20210120
  Transmission Date: 20210419
  Serious: Yes (Hospitalization)
  Sender: FDA-Public Use
  Company Number: None

PATIENT
  Age: 51 Year
  Sex: Male
  Weight: 110 kg

DRUGS (1)
  1. EDARAVONE (EDARAVONE 0.3MG/ML INJ,BAG,100ML) [Suspect]
     Active Substance: EDARAVONE
     Indication: AMYOTROPHIC LATERAL SCLEROSIS
     Dates: start: 20200713

REACTIONS (8)
  - Blood culture positive [None]
  - Product storage error [None]
  - Pericardial effusion [None]
  - Enterobacter infection [None]
  - Vascular device infection [None]
  - Influenza like illness [None]
  - Pericarditis [None]
  - Viral infection [None]

NARRATIVE: CASE EVENT DATE: 20201015
